FAERS Safety Report 17843304 (Version 1)
Quarter: 2020Q2

REPORT INFORMATION
  Report Type: Spontaneous
  Country: US (occurrence: US)
  Receive Date: 20200530
  Receipt Date: 20200530
  Transmission Date: 20200714
  Serious: Yes (Hospitalization, Other)
  Sender: FDA-Public Use
  Company Number: US-ACCORD-183569

PATIENT
  Age: 38 Year
  Sex: Female

DRUGS (9)
  1. POTASSIUM CHLORIDE. [Concomitant]
     Active Substance: POTASSIUM CHLORIDE
     Dosage: 20 MEQ DAILY
  2. METOLAZONE. [Concomitant]
     Active Substance: METOLAZONE
     Dosage: 5 MG DAILY AS NEEDED
  3. SODIUM HYDROGEN CARBONATE/POTASSIUM CHLORIDE/MACROGOL 3350/SODIUM CHLORIDE [Concomitant]
  4. FUROSEMIDE. [Suspect]
     Active Substance: FUROSEMIDE
     Indication: OEDEMA PERIPHERAL
     Dosage: 20 MG DAILY AS NEEDED
  5. LEVOTHYROXINE. [Concomitant]
     Active Substance: LEVOTHYROXINE
  6. LUBIPROSTONE [Concomitant]
     Active Substance: LUBIPROSTONE
  7. SERTRALINE [Concomitant]
     Active Substance: SERTRALINE HYDROCHLORIDE
     Indication: ANXIETY
  8. LIOTHYRONINE [Concomitant]
     Active Substance: LIOTHYRONINE
  9. OMEPRAZOLE. [Concomitant]
     Active Substance: OMEPRAZOLE

REACTIONS (4)
  - Urine sodium decreased [Unknown]
  - Metabolic alkalosis [Recovering/Resolving]
  - Hypotension [Unknown]
  - Urine chloride decreased [Unknown]
